FAERS Safety Report 5708121-8 (Version None)
Quarter: 2008Q2

REPORT INFORMATION
  Report Type: 
  Country: None (occurrence: None)
  Receive Date: 20080417
  Receipt Date: 20080407
  Transmission Date: 20081010
  Serious: Yes (Death, Other)
  Sender: FDA-Public Use
  Company Number: JP-ELI_LILLY_AND_COMPANY-JP_050907703

PATIENT
  Sex: Male
  Weight: 38 kg

DRUGS (6)
  1. GEMZAR [Suspect]
     Indication: NON-SMALL CELL LUNG CANCER STAGE IIIB
     Dosage: 1000 MG, OTHER
     Route: 042
     Dates: start: 20050830, end: 20050915
  2. CARBOPLATIN [Concomitant]
     Indication: NON-SMALL CELL LUNG CANCER STAGE IIIB
     Dosage: 150 MG, OTHER
     Route: 042
     Dates: start: 20050830, end: 20050915
  3. GASTER D                                /JPN/ [Concomitant]
     Dosage: 10 MG, OTHER
     Route: 048
     Dates: start: 20050902
  4. LASIX [Concomitant]
     Dosage: 20 MG, DAILY (1/D)
     Route: 048
     Dates: start: 20050902
  5. ASPARA K [Concomitant]
     Dosage: 1 UNK, DAILY (1/D)
     Route: 048
     Dates: start: 20050913
  6. TOLEDOMIN [Concomitant]
     Dosage: 15 MG, DAILY (1/D)
     Route: 048
     Dates: start: 20050916, end: 20050927

REACTIONS (6)
  - ABDOMINAL PAIN [None]
  - ANAEMIA [None]
  - ANXIETY [None]
  - DECREASED APPETITE [None]
  - PLATELET COUNT DECREASED [None]
  - SUDDEN DEATH [None]
